FAERS Safety Report 6262203-3 (Version None)
Quarter: 2009Q3

REPORT INFORMATION
  Report Type: 
  Country: None (occurrence: None)
  Receive Date: 20090708
  Receipt Date: 20090708
  Transmission Date: 20100115
  Serious: No
  Sender: FDA-Public Use
  Company Number: None

PATIENT
  Age: 71 Year
  Sex: Female
  Weight: 87.9978 kg

DRUGS (1)
  1. TOPIRAMATE [Suspect]
     Dosage: ONE TABLET TWICE DAILY ORAL
     Route: 048
     Dates: start: 20090609, end: 20090709

REACTIONS (3)
  - DRUG EFFECT DECREASED [None]
  - NO THERAPEUTIC RESPONSE [None]
  - PRODUCT SUBSTITUTION ISSUE [None]
